FAERS Safety Report 15007436 (Version 1)
Quarter: 2018Q2

REPORT INFORMATION
  Report Type: Spontaneous
  Country: US (occurrence: US)
  Receive Date: 20180613
  Receipt Date: 20180613
  Transmission Date: 20180711
  Serious: Yes (Death, Other)
  Sender: FDA-Public Use
  Company Number: US-TEVA-2018-US-905538

PATIENT
  Age: 42 Year
  Sex: Female

DRUGS (1)
  1. PROPRANOLOL [Suspect]
     Active Substance: PROPRANOLOL HYDROCHLORIDE
     Indication: PRODUCT USED FOR UNKNOWN INDICATION
     Route: 048

REACTIONS (10)
  - Unresponsive to stimuli [Fatal]
  - Bradycardia [Fatal]
  - Pulse absent [Fatal]
  - Haemodynamic instability [Fatal]
  - Peripheral coldness [Unknown]
  - Blood pressure decreased [Fatal]
  - Apnoeic attack [Fatal]
  - Overdose [Fatal]
  - Dyspnoea [Fatal]
  - Oxygen saturation decreased [Fatal]
